FAERS Safety Report 23330231 (Version 1)
Quarter: 2023Q4

REPORT INFORMATION
  Report Type: Spontaneous
  Country: CH (occurrence: CH)
  Receive Date: 20231222
  Receipt Date: 20231222
  Transmission Date: 20240110
  Serious: Yes (Other)
  Sender: FDA-Public Use
  Company Number: None

PATIENT
  Age: 54 Year
  Sex: Male
  Weight: 112 kg

DRUGS (56)
  1. REMDESIVIR [Suspect]
     Active Substance: REMDESIVIR
     Indication: COVID-19
     Route: 065
     Dates: start: 20231023, end: 20231025
  2. MEROPENEM [Suspect]
     Active Substance: MEROPENEM
     Indication: Product used for unknown indication
     Route: 065
     Dates: start: 20230912, end: 20230915
  3. MEROPENEM [Suspect]
     Active Substance: MEROPENEM
     Indication: Product used for unknown indication
     Route: 065
     Dates: start: 20231026, end: 20231027
  4. BACTRIM [Suspect]
     Active Substance: SULFAMETHOXAZOLE\TRIMETHOPRIM
     Indication: Product used for unknown indication
     Route: 065
     Dates: start: 20231017, end: 20231025
  5. TORSEMIDE [Suspect]
     Active Substance: TORSEMIDE
     Indication: Product used for unknown indication
     Route: 065
     Dates: start: 20231013
  6. TORSEMIDE [Suspect]
     Active Substance: TORSEMIDE
     Dosage: 5 MG
     Route: 065
     Dates: start: 20231013
  7. CANDESARTAN CILEXETIL [Suspect]
     Active Substance: CANDESARTAN CILEXETIL
     Indication: Product used for unknown indication
     Route: 065
     Dates: start: 20231018
  8. AMLODIPINE [Suspect]
     Active Substance: AMLODIPINE BESYLATE
     Indication: Product used for unknown indication
     Route: 065
     Dates: start: 20231019
  9. AMLODIPINE [Suspect]
     Active Substance: AMLODIPINE BESYLATE
     Dosage: 5 MG
     Route: 065
     Dates: start: 20231017, end: 20231018
  10. ENOXAPARIN SODIUM [Suspect]
     Active Substance: ENOXAPARIN SODIUM
     Indication: Product used for unknown indication
     Route: 065
     Dates: start: 20231020
  11. CLONIDINE [Suspect]
     Active Substance: CLONIDINE
     Indication: Product used for unknown indication
     Route: 065
     Dates: start: 20230921, end: 20230921
  12. CLONIDINE [Suspect]
     Active Substance: CLONIDINE
     Dosage: 150 UG
     Route: 065
     Dates: start: 20231028
  13. CEFTRIAXONE [Concomitant]
     Active Substance: CEFTRIAXONE\CEFTRIAXONE SODIUM
     Dates: start: 20230911, end: 20230912
  14. VANCOCIN [Concomitant]
     Active Substance: VANCOMYCIN HYDROCHLORIDE
     Route: 042
     Dates: start: 20230912, end: 20230914
  15. AMOXICILLIN\CLAVULANATE POTASSIUM [Concomitant]
     Active Substance: AMOXICILLIN\CLAVULANATE POTASSIUM
     Dates: start: 20230916, end: 20231017
  16. AMOXICILLIN\CLAVULANATE POTASSIUM [Concomitant]
     Active Substance: AMOXICILLIN\CLAVULANATE POTASSIUM
     Dates: start: 20231025, end: 20231026
  17. CEFEPIME [Concomitant]
     Active Substance: CEFEPIME HYDROCHLORIDE
     Dates: start: 20231027
  18. TACROLIMUS [Concomitant]
     Active Substance: TACROLIMUS
     Indication: Factor VIII deficiency
  19. METHADONE HYDROCHLORIDE [Concomitant]
     Active Substance: METHADONE HYDROCHLORIDE
     Indication: Substance dependence
     Dosage: 5 MG/1 ML
  20. METHADONE HYDROCHLORIDE [Concomitant]
     Active Substance: METHADONE HYDROCHLORIDE
     Dosage: 5 MG/1 ML
  21. METHADONE HYDROCHLORIDE [Concomitant]
     Active Substance: METHADONE HYDROCHLORIDE
     Dosage: 10 MG/1 ML
     Dates: start: 20230912, end: 20230924
  22. BECOZYM-F [Concomitant]
     Dates: start: 20230912
  23. METAMIZOLE [Concomitant]
     Active Substance: METAMIZOLE
     Dates: start: 20230917, end: 20231030
  24. PALLADONE [Concomitant]
     Active Substance: HYDROMORPHONE HYDROCHLORIDE
     Dates: start: 20230917
  25. HYDROMORPHONE [Concomitant]
     Active Substance: HYDROMORPHONE
     Dosage: AS NECESSARY
     Dates: start: 20230917
  26. FOLIC ACID [Concomitant]
     Active Substance: FOLIC ACID
     Dates: start: 20230920
  27. MIDAZOLAM HYDROCHLORIDE [Concomitant]
     Active Substance: MIDAZOLAM HYDROCHLORIDE
     Dates: start: 20230925
  28. ADVATE [Concomitant]
     Active Substance: ANTIHEMOPHILIC FACTOR, HUMAN RECOMBINANT
     Dates: start: 20230917, end: 20231027
  29. ADVATE [Concomitant]
     Active Substance: ANTIHEMOPHILIC FACTOR, HUMAN RECOMBINANT
     Dates: start: 20230921
  30. ADVATE [Concomitant]
     Active Substance: ANTIHEMOPHILIC FACTOR, HUMAN RECOMBINANT
     Dates: start: 20230919
  31. NACL B.BRAUN [Concomitant]
     Dosage: (50)
     Dates: start: 20230919
  32. TRANEXAMIC ACID [Concomitant]
     Active Substance: TRANEXAMIC ACID
     Dosage: 500 MG/5 ML
     Dates: start: 20230924, end: 20230927
  33. TRANEXAMIC ACID [Concomitant]
     Active Substance: TRANEXAMIC ACID
     Dosage: 500 MG/5 ML
     Dates: start: 20230929, end: 20231017
  34. TRANEXAMIC ACID [Concomitant]
     Active Substance: TRANEXAMIC ACID
     Dosage: 500 MG/5 ML
     Dates: start: 20231027
  35. HEMLIBRA [Concomitant]
     Active Substance: EMICIZUMAB-KXWH
     Indication: Factor VIII deficiency
     Dosage: 150 MG/1 ML
     Route: 058
     Dates: start: 20230912
  36. HEMLIBRA [Concomitant]
     Active Substance: EMICIZUMAB-KXWH
     Dosage: 105 MG/ 0.7 ML
     Route: 058
     Dates: start: 20231004, end: 20231004
  37. HEMLIBRA [Concomitant]
     Active Substance: EMICIZUMAB-KXWH
     Dosage: 60 MG/0.4 ML
     Route: 058
     Dates: start: 20231004, end: 20231004
  38. NOVORAPID [Concomitant]
     Active Substance: INSULIN ASPART
     Dates: start: 20230923
  39. LANTUS [Concomitant]
     Active Substance: INSULIN GLARGINE
     Dates: start: 20230923
  40. DOMPERIDONE [Concomitant]
     Active Substance: DOMPERIDONE
     Dosage: AS NECESSARY
     Dates: start: 20230912
  41. VALVERDE SCHLAF [Concomitant]
     Dosage: AS NECESSARY
     Dates: start: 20230912
  42. SODIUM PICOSULFATE [Concomitant]
     Active Substance: SODIUM PICOSULFATE
     Dosage: AS NECESSARY
     Dates: start: 20230919, end: 20231005
  43. LAXIPEG [Concomitant]
     Dosage: AS NECESSARY
     Dates: start: 20230912
  44. HERBALS [Concomitant]
     Active Substance: HERBALS
     Dosage: AS NECESSARY
     Dates: start: 20231027
  45. DAFALGAN [Concomitant]
     Active Substance: ACETAMINOPHEN
     Dates: start: 20230913, end: 20231027
  46. DAFALGAN [Concomitant]
     Active Substance: ACETAMINOPHEN
     Dosage: AS NECESSARY
     Dates: start: 20231029
  47. DAFALGAN [Concomitant]
     Active Substance: ACETAMINOPHEN
     Dates: start: 20231015, end: 20231030
  48. ONDANSETRON [Concomitant]
     Active Substance: ONDANSETRON
     Dosage: AS NECESSARY
     Dates: start: 20231001
  49. IMAZOL [CLOTRIMAZOLE] [Concomitant]
     Dates: start: 20231012, end: 20231016
  50. HEPARINUM [HEPARIN CALCIUM] [Concomitant]
     Dates: start: 20230917, end: 20231020
  51. ARANESP [Concomitant]
     Active Substance: DARBEPOETIN ALFA
     Dates: start: 20230920, end: 20231002
  52. NEXIUM [Concomitant]
     Active Substance: ESOMEPRAZOLE MAGNESIUM
     Dates: start: 20230912, end: 20231005
  53. IOXITALAMIC ACID [Concomitant]
     Active Substance: IOXITALAMIC ACID
     Dates: start: 20230920, end: 20231005
  54. THIAMINE HYDROCHLORIDE [Concomitant]
     Active Substance: THIAMINE HYDROCHLORIDE
     Dates: start: 20230912, end: 20230917
  55. LORAZEPAM [Concomitant]
     Active Substance: LORAZEPAM
     Dates: start: 20230921, end: 20230921
  56. KONAKION [Concomitant]
     Active Substance: PHYTONADIONE
     Dosage: 10 MG/1 ML
     Route: 048
     Dates: start: 20230924, end: 20230927

REACTIONS (1)
  - Liver disorder [Not Recovered/Not Resolved]
